FAERS Safety Report 8956294 (Version 2)
Quarter: 2013Q1

REPORT INFORMATION
  Report Type: Spontaneous
  Country: GR (occurrence: GR)
  Receive Date: 20121210
  Receipt Date: 20130116
  Transmission Date: 20140127
  Serious: Yes (Life-Threatening, Hospitalization, Other)
  Sender: FDA-Public Use
  Company Number: GR-BAYER-2012-127770

PATIENT
  Age: 71 Year
  Sex: Male

DRUGS (2)
  1. GADOVIST [Suspect]
     Indication: CARDIAC IMAGING PROCEDURE
     Dosage: UNK
     Route: 042
     Dates: start: 20121130, end: 20121130
  2. GADOVIST [Suspect]
     Indication: NUCLEAR MAGNETIC RESONANCE IMAGING

REACTIONS (5)
  - Obstructive airways disorder [Recovered/Resolved]
  - Generalised oedema [Recovered/Resolved]
  - Convulsion [Recovered/Resolved]
  - Tremor [Recovered/Resolved]
  - Rash [Recovered/Resolved]
